FAERS Safety Report 5670768-5 (Version None)
Quarter: 2008Q1

REPORT INFORMATION
  Report Type: 
  Country: None (occurrence: None)
  Receive Date: 20080318
  Receipt Date: 20080311
  Transmission Date: 20080703
  Serious: Yes (Other)
  Sender: FDA-Public Use
  Company Number: US-ROCHE-551725

PATIENT
  Age: 7 Year
  Sex: Female
  Weight: 24.5 kg

DRUGS (2)
  1. TAMIFLU [Suspect]
     Route: 048
     Dates: start: 20080219, end: 20080222
  2. PREVACID [Concomitant]

REACTIONS (1)
  - PAIN IN EXTREMITY [None]
